FAERS Safety Report 6035807-0 (Version None)
Quarter: 2009Q1

REPORT INFORMATION
  Report Type: 
  Country: None (occurrence: None)
  Receive Date: 20090113
  Receipt Date: 20090102
  Transmission Date: 20090719
  Serious: Yes (Disabling, Other)
  Sender: FDA-Public Use
  Company Number: GR-PFIZER INC-2008066996

PATIENT

DRUGS (7)
  1. ALDACTONE [Suspect]
     Indication: CARDIAC FAILURE
     Route: 048
     Dates: start: 20010101
  2. LASIX [Suspect]
     Indication: CARDIAC FAILURE
     Route: 048
     Dates: start: 20000101
  3. DIGOXIN [Concomitant]
     Indication: CARDIAC FAILURE
     Dates: start: 20000101
  4. SINTROM [Concomitant]
     Indication: ATRIAL FIBRILLATION
     Dates: start: 19980101
  5. PANCORAN [Concomitant]
     Indication: CORONARY ARTERY DISEASE
     Dosage: 40 MG, 1X/DAY
     Dates: start: 20010101
  6. SIMVASTATIN [Concomitant]
     Indication: CORONARY ARTERY DISEASE
     Dates: start: 20030101
  7. MADOPAR [Concomitant]
     Dates: start: 20080601

REACTIONS (6)
  - AKINESIA [None]
  - BRADYKINESIA [None]
  - PARKINSONISM [None]
  - SALIVARY HYPERSECRETION [None]
  - SPINAL DEFORMITY [None]
  - TREMOR [None]
